FAERS Safety Report 6194887-2 (Version None)
Quarter: 2009Q2

REPORT INFORMATION
  Report Type: 
  Country: None (occurrence: None)
  Receive Date: 20090515
  Receipt Date: 20090515
  Transmission Date: 20091009
  Serious: Yes (Disabling)
  Sender: FDA-Public Use
  Company Number: None

PATIENT
  Sex: Female
  Weight: 74.3899 kg

DRUGS (2)
  1. CREST PRO-HEALTH NIGHT RINSE CLEAN NIGHT MINT CREST/PROCTER + GAMBLE [Suspect]
     Indication: DENTAL PLAQUE
     Dosage: 1/2 CAPFUL EVERY EVENING
     Dates: start: 20090401, end: 20090501
  2. CREST PRO-HEALTH NIGHT RINSE CLEAN NIGHT MINT CREST/PROCTER + GAMBLE [Suspect]
     Indication: GINGIVITIS
     Dosage: 1/2 CAPFUL EVERY EVENING
     Dates: start: 20090401, end: 20090501

REACTIONS (1)
  - TOOTH DISCOLOURATION [None]
